FAERS Safety Report 10554250 (Version 1)
Quarter: 2014Q4

REPORT INFORMATION
  Report Type: Spontaneous
  Country: US (occurrence: None)
  Receive Date: 20141029
  Receipt Date: 20141029
  Transmission Date: 20150529
  Serious: Yes (Hospitalization)
  Sender: FDA-Public Use
  Company Number: None

PATIENT
  Age: 55 Year
  Sex: Male
  Weight: 93 kg

DRUGS (1)
  1. TRAZODONE [Suspect]
     Active Substance: TRAZODONE HYDROCHLORIDE
     Indication: INSOMNIA
     Route: 048
     Dates: start: 20140122, end: 20140801

REACTIONS (6)
  - Fibrosis [None]
  - Priapism [None]
  - Penile necrosis [None]
  - Surgical failure [None]
  - Amputation of penis [None]
  - Superinfection [None]

NARRATIVE: CASE EVENT DATE: 20140801
